FAERS Safety Report 12251723 (Version 2)
Quarter: 2016Q2

REPORT INFORMATION
  Report Type: Report from Study
  Country: US (occurrence: US)
  Receive Date: 20160411
  Receipt Date: 20160419
  Transmission Date: 20160815
  Serious: No
  Sender: FDA-Public Use
  Company Number: US-AMGEN-USASP2016040605

PATIENT
  Age: 42 Year
  Sex: Female

DRUGS (2)
  1. ENBREL [Suspect]
     Active Substance: ETANERCEPT
     Indication: ANKYLOSING SPONDYLITIS
     Dosage: 50 MG, QWK
     Route: 065
     Dates: start: 20160323
  2. ENBREL [Suspect]
     Active Substance: ETANERCEPT
     Indication: JOINT SWELLING

REACTIONS (9)
  - Off label use [Unknown]
  - Injection site haemorrhage [Unknown]
  - Injection site erythema [Unknown]
  - Injection site swelling [Unknown]
  - Underdose [Unknown]
  - Injection site warmth [Unknown]
  - Night sweats [Unknown]
  - Nausea [Unknown]
  - Device issue [Unknown]

NARRATIVE: CASE EVENT DATE: 201603
